FAERS Safety Report 8343894 (Version 2)
Quarter: 2013Q3

REPORT INFORMATION
  Report Type: Spontaneous
  Country: US (occurrence: US)
  Receive Date: 20120119
  Receipt Date: 20130820
  Transmission Date: 20140515
  Serious: Yes (Death, Hospitalization)
  Sender: FDA-Public Use
  Company Number: US-SANOFI-AVENTIS-2011SA051214

PATIENT
  Age: 81 Year
  Sex: Male

DRUGS (16)
  1. LASIX [Suspect]
     Route: 065
     Dates: end: 20110625
  2. BLINDED THERAPY [Suspect]
     Indication: TYPE 2 DIABETES MELLITUS
     Route: 065
     Dates: start: 20100907, end: 20120225
  3. METFORMIN HYDROCHLORIDE [Suspect]
     Indication: TYPE 2 DIABETES MELLITUS
     Route: 065
     Dates: end: 20110525
  4. METFORMIN HYDROCHLORIDE [Suspect]
     Indication: TYPE 2 DIABETES MELLITUS
     Route: 065
     Dates: start: 20110526, end: 20110701
  5. INSULIN DETEMIR [Suspect]
     Indication: TYPE 2 DIABETES MELLITUS
     Dosage: DOSE:20 UNIT(S)
     Route: 065
     Dates: start: 20101213
  6. INSULIN DETEMIR [Suspect]
     Indication: TYPE 2 DIABETES MELLITUS
     Route: 065
     Dates: start: 20110427, end: 20110810
  7. SOTALOL [Suspect]
     Dates: end: 20110623
  8. ALPHA-ADRENOCEPTOR BLOCKING AGENTS [Concomitant]
  9. CHOLESTEROL- AND TRIGLYCERIDE REDUCERS [Concomitant]
  10. DIURETICS [Concomitant]
  11. ANTITHROMBOTIC AGENTS [Concomitant]
     Route: 048
  12. ANTIHYPERTENSIVES [Concomitant]
  13. ACE INHIBITOR NOS [Concomitant]
  14. INSULIN ASPART [Concomitant]
     Route: 065
     Dates: start: 20110810, end: 20110817
  15. INSULIN ASPART [Concomitant]
     Route: 065
     Dates: start: 20110818, end: 20110907
  16. INSULIN ASPART [Concomitant]
     Route: 065
     Dates: start: 20110908

REACTIONS (2)
  - Cardiac failure congestive [Fatal]
  - Renal failure acute [Recovered/Resolved]
